FAERS Safety Report 19082041 (Version 1)
Quarter: 2021Q1

REPORT INFORMATION
  Report Type: Spontaneous
  Country: CA (occurrence: CA)
  Receive Date: 20210331
  Receipt Date: 20210331
  Transmission Date: 20210420
  Serious: Yes (Disabling)
  Sender: FDA-Public Use
  Company Number: None

PATIENT
  Age: 62 Year
  Sex: Male
  Weight: 90 kg

DRUGS (13)
  1. DEXEDRINE SR 15MG [Concomitant]
  2. REMERON [Suspect]
     Active Substance: MIRTAZAPINE
  3. CANDESARTAN 16MG [Concomitant]
  4. TRAZODONE [Suspect]
     Active Substance: TRAZODONE HYDROCHLORIDE
  5. VITAMIN B COMPLEX [Concomitant]
     Active Substance: CYANOCOBALAMIN\DEXPANTHENOL\NIACINAMIDE\PYRIDOXINE HYDROCHLORIDE\RIBOFLAVIN 5^-PHOSPHATE SODIUM\THIAMINE HYDROCHLORIDE\VITAMIN B COMPLEX
  6. VIIBRYD [Suspect]
     Active Substance: VILAZODONE HYDROCHLORIDE
  7. ROSUVASTATIN 20MG [Concomitant]
     Active Substance: ROSUVASTATIN
  8. MULTIVITAMIN [Concomitant]
     Active Substance: VITAMINS
  9. REXULTI [Suspect]
     Active Substance: BREXPIPRAZOLE
     Indication: DEPRESSION
     Dosage: ?          QUANTITY:1 TABLET(S);?
     Route: 048
     Dates: start: 20200915, end: 20200927
  10. ASPIRIN 81MG [Concomitant]
     Active Substance: ASPIRIN
  11. CLONAZEPAM 0.5MG HS [Concomitant]
  12. ATENOLOL 25MG [Concomitant]
     Active Substance: ATENOLOL
  13. VITAMIN D [Concomitant]
     Active Substance: VITAMIN D NOS

REACTIONS (7)
  - Loss of consciousness [None]
  - Feeling jittery [None]
  - Fine motor skill dysfunction [None]
  - Aphasia [None]
  - Tremor [None]
  - Agitation [None]
  - Anxiety [None]

NARRATIVE: CASE EVENT DATE: 20200915
